FAERS Safety Report 13951018 (Version 2)
Quarter: 2017Q3

REPORT INFORMATION
  Report Type: Report from Study
  Country: US (occurrence: US)
  Receive Date: 20170908
  Receipt Date: 20170912
  Transmission Date: 20171128
  Serious: Yes (Other)
  Sender: FDA-Public Use
  Company Number: US-PFIZER INC-2017310340

PATIENT
  Age: 81 Year
  Sex: Male

DRUGS (1)
  1. SUTENT [Suspect]
     Active Substance: SUNITINIB MALATE
     Indication: RENAL CELL CARCINOMA
     Dosage: 37.5 MG, CYCLIC (ONCE DAILY FOR 2 WEEKS FOLLOWED BY 1 WEEK OFF/ FOR 14 DAYS FOLLOWED BY 7 DAYS
     Route: 048
     Dates: start: 20170710

REACTIONS (10)
  - Blood potassium decreased [Unknown]
  - Glossodynia [Unknown]
  - Chills [Unknown]
  - Hypertension [Not Recovered/Not Resolved]
  - Fatigue [Not Recovered/Not Resolved]
  - Condition aggravated [Not Recovered/Not Resolved]
  - Asthenia [Unknown]
  - Dehydration [Unknown]
  - Nausea [Unknown]
  - Ageusia [Unknown]

NARRATIVE: CASE EVENT DATE: 2017
